FAERS Safety Report 8766132 (Version 2)
Quarter: 2013Q2

REPORT INFORMATION
  Report Type: Report from Study
  Country: US (occurrence: US)
  Receive Date: 20120904
  Receipt Date: 20130514
  Transmission Date: 20140414
  Serious: No
  Sender: FDA-Public Use
  Company Number: US-009507513-1208USA000574

PATIENT
  Age: 58 Year
  Sex: Female

DRUGS (8)
  1. VICTRELIS [Suspect]
     Indication: HEPATITIS C
     Dosage: 800 MG (4-200MG CAPS) BY MOUTH THREE TIMES A DAY (EVERY 7-9 HOURS)
  2. REBETOL [Suspect]
     Dosage: 200 MG, UNK
  3. PEGASYS [Suspect]
     Dosage: 180 MICROGRAM/M
  4. OMEPRAZOLE [Concomitant]
     Dosage: 10 MG, UNK
  5. DIGOXIN [Concomitant]
     Dosage: 0.125 MG, UNK
  6. SPIRONOLACT [Concomitant]
     Dosage: 25 MG, UNK
  7. VASOTEC [Concomitant]
     Dosage: 20 MG, UNK
  8. ASPIR-81 [Concomitant]
     Dosage: 81 MG, UNK

REACTIONS (1)
  - Dysgeusia [Unknown]
